FAERS Safety Report 4339232-X (Version None)
Quarter: 2004Q2

REPORT INFORMATION
  Report Type: 
  Country: None (occurrence: None)
  Receive Date: 20040415
  Receipt Date: 20031209
  Transmission Date: 20050107
  Serious: Yes (Other)
  Sender: FDA-Public Use
  Company Number: 200320388US

PATIENT
  Sex: Female

DRUGS (5)
  1. ARAVA [Suspect]
     Indication: RHEUMATOID ARTHRITIS
     Route: 048
     Dates: start: 20011105, end: 20020426
  2. INH [Suspect]
     Indication: TUBERCULIN TEST POSITIVE
     Route: 048
     Dates: start: 20020319, end: 20020426
  3. METHOTREXATE [Concomitant]
     Route: 030
     Dates: start: 20010709, end: 20011105
  4. PREDNISONE [Concomitant]
     Dosage: DOSE: 4-5
     Dates: start: 20010101
  5. FOLIC ACID [Concomitant]

REACTIONS (4)
  - ALANINE AMINOTRANSFERASE INCREASED [None]
  - DRUG HYPERSENSITIVITY [None]
  - HEPATITIS [None]
  - PYREXIA [None]
